FAERS Safety Report 19027644 (Version 3)
Quarter: 2021Q2

REPORT INFORMATION
  Report Type: Spontaneous
  Country: JP (occurrence: JP)
  Receive Date: 20210319
  Receipt Date: 20210521
  Transmission Date: 20210717
  Serious: Yes (Other)
  Sender: FDA-Public Use
  Company Number: JP-AMGEN-JPNSP2021039432

PATIENT
  Age: 49 Year
  Sex: Male

DRUGS (3)
  1. OTEZLA [Suspect]
     Active Substance: APREMILAST
     Indication: PSORIASIS
     Dosage: 60 MILLIGRAM
     Route: 048
     Dates: start: 20170319, end: 20170401
  2. CICLOSPORIN [Suspect]
     Active Substance: CYCLOSPORINE
     Indication: PSORIASIS
     Dosage: 100 MILLIGRAM, QD
     Route: 048
     Dates: start: 20161021, end: 20170218
  3. BONALFAHIGH [Concomitant]
     Active Substance: TACALCITOL
     Dosage: UNK
     Route: 065

REACTIONS (1)
  - Secondary syphilis [Recovered/Resolved]

NARRATIVE: CASE EVENT DATE: 20170401
